FAERS Safety Report 5092016-X (Version None)
Quarter: 2006Q3

REPORT INFORMATION
  Report Type: 
  Country: None (occurrence: None)
  Receive Date: 20060825
  Receipt Date: 20060809
  Transmission Date: 20061208
  Serious: Yes (Other)
  Sender: FDA-Public Use
  Company Number: JP200607003118

PATIENT
  Age: 50 Year
  Sex: Male

DRUGS (2)
  1. GEMZAR [Suspect]
     Indication: MESOTHELIOMA MALIGNANT
     Dosage: 1000 MG/M2,OTHER, INTRAVENOUS
     Route: 042
  2. CISPLATIN [Concomitant]

REACTIONS (1)
  - FACIAL PALSY [None]
